FAERS Safety Report 7174634-8 (Version None)
Quarter: 2010Q4

REPORT INFORMATION
  Report Type: 
  Country: None (occurrence: None)
  Receive Date: 20101215
  Receipt Date: 20101215
  Transmission Date: 20110411
  Serious: No
  Sender: FDA-Public Use
  Company Number: None

PATIENT
  Age: 58 Year
  Sex: Female

DRUGS (2)
  1. CITALOPRAM HYDROBROMIDE [Suspect]
     Indication: DEPRESSION
     Dosage: 10MG ONCE QD PO
     Route: 048
     Dates: start: 20101205, end: 20101206
  2. CITALOPRAM HYDROBROMIDE [Suspect]

REACTIONS (6)
  - FLUID RETENTION [None]
  - HEART RATE IRREGULAR [None]
  - PRURITUS [None]
  - RASH [None]
  - SWELLING [None]
  - SWELLING FACE [None]
